FAERS Safety Report 6729878-3 (Version None)
Quarter: 2010Q2

REPORT INFORMATION
  Report Type: 
  Country: None (occurrence: None)
  Receive Date: 20100518
  Receipt Date: 20100512
  Transmission Date: 20101027
  Serious: No
  Sender: FDA-Public Use
  Company Number: US-BAYER-201015457BCC

PATIENT
  Age: 55 Year
  Sex: Female

DRUGS (3)
  1. ALEVE (CAPLET) [Suspect]
     Indication: BACK PAIN
     Route: 065
  2. PRISTIQ [Suspect]
     Indication: DRUG USE FOR UNKNOWN INDICATION
     Route: 065
  3. PRISTIQ [Suspect]
     Route: 065

REACTIONS (4)
  - ABNORMAL DREAMS [None]
  - GAIT DISTURBANCE [None]
  - INCREASED TENDENCY TO BRUISE [None]
  - SCIATICA [None]
